FAERS Safety Report 9225043 (Version 1)
Quarter: 2013Q1

REPORT INFORMATION
  Report Type: Spontaneous
  Country: US (occurrence: None)
  Receive Date: 20120912
  Receipt Date: 20120912
  Transmission Date: 20140127
  Serious: No
  Sender: FDA-Public Use
  Company Number: 2012SP021609

PATIENT
  Age: 58 Year
  Sex: Female

DRUGS (6)
  1. VICTRELIS [Suspect]
     Route: 048
     Dates: start: 20110921, end: 20120416
  2. PEGINTRON [Suspect]
     Indication: PRODUCT USED FOR UNKNOWN INDICATION
  3. RIBASPHERE [Suspect]
     Indication: PRODUCT USED FOR UNKNOWN INDICATION
  4. PROTONIX [Concomitant]
  5. DICYCLOMINE [Concomitant]
  6. CRESTOR [Concomitant]

REACTIONS (9)
  - Gastrooesophageal reflux disease [None]
  - Oedema peripheral [None]
  - Migraine [None]
  - Nausea [None]
  - Alopecia [None]
  - Red blood cell count decreased [None]
  - White blood cell count decreased [None]
  - Headache [None]
  - Haematocrit abnormal [None]
